FAERS Safety Report 11860016 (Version 1)
Quarter: 2015Q4

REPORT INFORMATION
  Report Type: Spontaneous
  Country: KR (occurrence: KR)
  Receive Date: 20151222
  Receipt Date: 20151222
  Transmission Date: 20160305
  Serious: Yes (Other)
  Sender: FDA-Public Use
  Company Number: KR-AMGEN-KORCT2015136528

PATIENT
  Age: 58 Year
  Sex: Female

DRUGS (36)
  1. VINCRISTINE [Concomitant]
     Active Substance: VINCRISTINE
     Dosage: 2 MG, UNK
     Route: 042
     Dates: start: 20150123, end: 20150123
  2. PREDNISOLONE. [Concomitant]
     Active Substance: PREDNISOLONE
     Dosage: 100 MG, UNK
     Route: 048
     Dates: start: 20150213, end: 20150217
  3. MAG-OX [Concomitant]
     Active Substance: MAGNESIUM OXIDE
     Dosage: 1500 MG, UNK
     Route: 048
     Dates: start: 20141212, end: 20141218
  4. APETROL ES [Concomitant]
     Dosage: 650 MG, UNK
     Route: 048
     Dates: start: 20150213, end: 20150228
  5. CYCLOPHOSPHAMIDE. [Concomitant]
     Active Substance: CYCLOPHOSPHAMIDE
     Indication: NON-HODGKIN^S LYMPHOMA
     Dosage: 1080 MG, UNK
     Route: 042
     Dates: start: 20141211, end: 20141211
  6. PREDNISOLONE. [Concomitant]
     Active Substance: PREDNISOLONE
     Dosage: 100 MG, UNK
     Route: 048
     Dates: start: 20150102, end: 20150106
  7. RITUXIMAB [Concomitant]
     Active Substance: RITUXIMAB
     Dosage: 540 MG, UNK
     Route: 042
     Dates: start: 20150102, end: 20150102
  8. EMEND [Concomitant]
     Active Substance: APREPITANT
     Dosage: 125 MG, UNK
     Route: 048
     Dates: start: 20150102, end: 20150213
  9. G-LASTA [Suspect]
     Active Substance: PEGFILGRASTIM
     Dosage: 6 MG, 1X/3WEEKS
     Route: 058
     Dates: start: 20150215
  10. CYCLOPHOSPHAMIDE. [Concomitant]
     Active Substance: CYCLOPHOSPHAMIDE
     Dosage: 1080 MG, UNK
     Route: 042
     Dates: start: 20150123, end: 20150123
  11. DOXORUBICIN [Concomitant]
     Active Substance: DOXORUBICIN
     Dosage: 72 MG, UNK
     Route: 042
     Dates: start: 20150102, end: 20150102
  12. DOXORUBICIN [Concomitant]
     Active Substance: DOXORUBICIN
     Dosage: 72 MG, UNK
     Route: 042
     Dates: start: 20150123, end: 20150123
  13. RITUXIMAB [Concomitant]
     Active Substance: RITUXIMAB
     Dosage: 540 MG, UNK
     Route: 042
     Dates: start: 20150123, end: 20150123
  14. G-LASTA [Suspect]
     Active Substance: PEGFILGRASTIM
     Indication: FEBRILE NEUTROPENIA
     Dosage: 6 MG, 1X/3WEEKS
     Route: 058
     Dates: start: 20141213
  15. DOXORUBICIN [Concomitant]
     Active Substance: DOXORUBICIN
     Dosage: 72 MG, UNK
     Route: 042
     Dates: start: 20150213, end: 20150213
  16. VINCRISTINE [Concomitant]
     Active Substance: VINCRISTINE
     Indication: NON-HODGKIN^S LYMPHOMA
     Dosage: 2 MG, UNK
     Route: 042
     Dates: start: 20141211, end: 20141211
  17. PREDNISOLONE. [Concomitant]
     Active Substance: PREDNISOLONE
     Indication: NON-HODGKIN^S LYMPHOMA
     Dosage: 100 MG, UNK
     Route: 048
     Dates: start: 20141211, end: 20141215
  18. ALOXI [Concomitant]
     Active Substance: PALONOSETRON HYDROCHLORIDE
     Dosage: 0.25 MG, UNK
     Route: 042
     Dates: start: 20141211, end: 20150213
  19. VINCRISTINE [Concomitant]
     Active Substance: VINCRISTINE
     Dosage: 2 MG, UNK
     Route: 042
     Dates: start: 20150102, end: 20150102
  20. MEGACE [Concomitant]
     Active Substance: MEGESTROL ACETATE
     Dosage: 800 MG, UNK
     Route: 048
     Dates: start: 20141212, end: 20141218
  21. ULCERMIN                           /00434701/ [Concomitant]
     Dosage: 80 MG, UNK
     Route: 048
     Dates: start: 20150102, end: 20150217
  22. G-LASTA [Suspect]
     Active Substance: PEGFILGRASTIM
     Dosage: 6 MG, 1X/3WEEKS
     Route: 058
     Dates: start: 20150104
  23. G-LASTA [Suspect]
     Active Substance: PEGFILGRASTIM
     Dosage: 6 MG, 1X/3WEEKS
     Route: 058
     Dates: start: 20150125
  24. SUSPEN ER [Concomitant]
     Dosage: 650 MG, UNK
     Route: 048
     Dates: start: 20141211, end: 20150213
  25. GASTER [Concomitant]
     Active Substance: FAMOTIDINE
     Dosage: 40 MG, UNK
     Route: 048
     Dates: start: 20141212, end: 20141216
  26. CYCLOPHOSPHAMIDE. [Concomitant]
     Active Substance: CYCLOPHOSPHAMIDE
     Dosage: 1080 MG, UNK
     Route: 042
     Dates: start: 20150102, end: 20150102
  27. DOXORUBICIN [Concomitant]
     Active Substance: DOXORUBICIN
     Indication: NON-HODGKIN^S LYMPHOMA
     Dosage: 72 MG, UNK
     Route: 042
     Dates: start: 20141211, end: 20141211
  28. CHLORPHENIRAMINE MALEATE. [Concomitant]
     Active Substance: CHLORPHENIRAMINE MALEATE
     Dosage: 4 MG, UNK
     Route: 042
     Dates: start: 20141211, end: 20150213
  29. METOCLOPRAMIDE. [Concomitant]
     Active Substance: METOCLOPRAMIDE
     Dosage: 15 MG, UNK
     Route: 048
     Dates: start: 20141212, end: 20150106
  30. LOPMIN [Concomitant]
     Dosage: 2 MG, UNK
     Route: 048
     Dates: start: 20141212, end: 20141218
  31. EMEND [Concomitant]
     Active Substance: APREPITANT
     Dosage: 80 MG, UNK
     Route: 048
     Dates: start: 20140102, end: 20150214
  32. CYCLOPHOSPHAMIDE. [Concomitant]
     Active Substance: CYCLOPHOSPHAMIDE
     Dosage: 1080 MG, UNK
     Route: 042
     Dates: start: 20150213, end: 20150213
  33. VINCRISTINE [Concomitant]
     Active Substance: VINCRISTINE
     Dosage: 2 MG, UNK
     Route: 042
     Dates: start: 20150213, end: 20150213
  34. PREDNISOLONE. [Concomitant]
     Active Substance: PREDNISOLONE
     Dosage: 100 MG, UNK
     Route: 048
     Dates: start: 20150123, end: 20150127
  35. RITUXIMAB [Concomitant]
     Active Substance: RITUXIMAB
     Indication: NON-HODGKIN^S LYMPHOMA
     Dosage: 540 MG, UNK
     Route: 042
     Dates: start: 20141211, end: 20141211
  36. RITUXIMAB [Concomitant]
     Active Substance: RITUXIMAB
     Dosage: 540 MG, UNK
     Route: 042
     Dates: start: 20150213, end: 20150213

REACTIONS (1)
  - Arrhythmia [Recovered/Resolved]

NARRATIVE: CASE EVENT DATE: 20150222
